FAERS Safety Report 4654597-7 (Version None)
Quarter: 2005Q2

REPORT INFORMATION
  Report Type: 
  Country: None (occurrence: None)
  Receive Date: 20050503
  Receipt Date: 20050503
  Transmission Date: 20051028
  Serious: Yes (Hospitalization)
  Sender: FDA-Public Use
  Company Number: None

PATIENT
  Sex: Female
  Weight: 8.6 kg

DRUGS (2)
  1. RILUTEK [Suspect]
     Indication: SPINAL MUSCULAR ATROPHY
     Dosage: 50MG DAILY    25MG AM + PM    ORAL
     Route: 048
     Dates: start: 20041119, end: 20050502
  2. TYLENOL (CAPLET) [Concomitant]

REACTIONS (1)
  - LIFE SUPPORT [None]
